FAERS Safety Report 24036673 (Version 1)
Quarter: 2024Q3

REPORT INFORMATION
  Report Type: Spontaneous
  Country: IN (occurrence: IN)
  Receive Date: 20240701
  Receipt Date: 20240701
  Transmission Date: 20241017
  Serious: Yes (Other)
  Sender: NOVARTIS
  Company Number: IN-002147023-NVSC2024IN134275

PATIENT
  Age: 63 Year
  Sex: Male

DRUGS (1)
  1. ELTROMBOPAG OLAMINE [Suspect]
     Active Substance: ELTROMBOPAG OLAMINE
     Indication: Rectal cancer
     Dosage: UNK
     Route: 048

REACTIONS (3)
  - Metastases to lung [Unknown]
  - Pulmonary mass [Unknown]
  - Product use in unapproved indication [Unknown]
